FAERS Safety Report 23381917 (Version 3)
Quarter: 2024Q1

REPORT INFORMATION
  Report Type: Spontaneous
  Country: US (occurrence: US)
  Receive Date: 20240109
  Receipt Date: 20240130
  Transmission Date: 20240410
  Serious: Yes (Life-Threatening, Hospitalization, Other)
  Sender: FDA-Public Use
  Company Number: US-SUN PHARMACEUTICAL INDUSTRIES LTD-2023R1-426616

PATIENT
  Age: 50 Year
  Sex: Male

DRUGS (2)
  1. PREDNISONE [Suspect]
     Active Substance: PREDNISONE
     Indication: Product used for unknown indication
     Dosage: UNK
     Route: 065
  2. REGORAFENIB [Suspect]
     Active Substance: REGORAFENIB
     Indication: Osteosarcoma
     Dosage: UNK
     Route: 065

REACTIONS (3)
  - Pneumonia pseudomonal [Unknown]
  - Pneumothorax [Unknown]
  - Sepsis [Unknown]
